FAERS Safety Report 22348101 (Version 1)
Quarter: 2023Q2

REPORT INFORMATION
  Report Type: Spontaneous
  Country: US (occurrence: US)
  Receive Date: 20230522
  Receipt Date: 20230522
  Transmission Date: 20230722
  Serious: No
  Sender: FDA-Public Use
  Company Number: US-SA-SAC20230519000442

PATIENT
  Age: 12 Year
  Sex: Male
  Weight: 34.926 kg

DRUGS (3)
  1. DUPIXENT [Suspect]
     Active Substance: DUPILUMAB
     Indication: Dermatitis atopic
     Dosage: 200 MG EVERY 2 WEEKS
     Route: 058
     Dates: start: 202212
  2. DYANAVEL XR [Concomitant]
     Active Substance: AMPHETAMINE
     Dosage: 10MG 24 H
  3. HYDROXYZINE HYDROCHLORIDE [Concomitant]
     Active Substance: HYDROXYZINE HYDROCHLORIDE
     Dosage: UNK

REACTIONS (1)
  - Hyperphagia [Unknown]
